FAERS Safety Report 7539956-7 (Version None)
Quarter: 2011Q2

REPORT INFORMATION
  Report Type: 
  Country: None (occurrence: None)
  Receive Date: 20110603
  Receipt Date: 20110526
  Transmission Date: 20111010
  Serious: Yes (Hospitalization, Other)
  Sender: FDA-Public Use
  Company Number: 2009AC000337

PATIENT
  Age: 68 Year
  Sex: Male
  Weight: 116.1208 kg

DRUGS (38)
  1. DIGOXIN [Suspect]
     Dosage: 0.125 MG, TIW, PO
     Route: 048
     Dates: start: 20080521, end: 20081101
  2. LACTOBACILLUS [Concomitant]
  3. NIFEDICAL [Concomitant]
  4. CEPHALEXIN [Concomitant]
  5. CEPHALEXIN [Concomitant]
  6. SYNTHROID [Concomitant]
  7. LIPITOR [Concomitant]
  8. LANTUS [Concomitant]
  9. NOVOLOG [Concomitant]
  10. ROCEPHIN [Concomitant]
  11. DIGOXIN [Suspect]
     Dosage: 0.25 MG, QD, PO
     Route: 048
     Dates: start: 20060412, end: 20070101
  12. LASIX [Concomitant]
  13. K-DUR [Concomitant]
  14. GLUCOTROL [Concomitant]
  15. PROCARDIA [Concomitant]
  16. DIGOXIN [Suspect]
     Dosage: 0.125 MG, M-F, PO
     Route: 048
     Dates: start: 20081101, end: 20090801
  17. COREG [Concomitant]
  18. KEEFLEX [Concomitant]
  19. GLUCOPHAGE [Concomitant]
  20. LIPITOR [Concomitant]
  21. LOPRESSOR [Concomitant]
  22. GLIPIZIDE [Concomitant]
  23. DIGOXIN [Suspect]
     Dosage: 0.25 MG, QD, PO
     Route: 048
     Dates: start: 20070824, end: 20080512
  24. HYDRALAZINE HCL [Concomitant]
  25. ASPIRIN [Concomitant]
  26. BENICAR [Concomitant]
  27. NOVOLOG [Concomitant]
  28. ASPIRIN [Concomitant]
  29. PROSCAR [Concomitant]
  30. BENICAR [Concomitant]
  31. FUROSEMIDE [Concomitant]
  32. VITAMIN D [Concomitant]
  33. EPOGEN [Concomitant]
  34. POTASSIUM CHLORIDE [Concomitant]
  35. ALTACE [Concomitant]
  36. HECTOROL [Concomitant]
  37. COREG [Concomitant]
  38. LEVOTHYROXINE SODIUM [Concomitant]

REACTIONS (27)
  - SLEEP APNOEA SYNDROME [None]
  - BRADYCARDIA [None]
  - EJECTION FRACTION DECREASED [None]
  - DIALYSIS [None]
  - AORTIC ANEURYSM [None]
  - HYPERTENSION [None]
  - NEPHRITIC SYNDROME [None]
  - HYPOGLYCAEMIA [None]
  - HYPOAESTHESIA [None]
  - CARDIAC FAILURE CONGESTIVE [None]
  - EMOTIONAL DISTRESS [None]
  - ARTHRITIS INFECTIVE [None]
  - RENAL IMPAIRMENT [None]
  - VITREOUS HAEMORRHAGE [None]
  - RENAL CYST [None]
  - UROSEPSIS [None]
  - SKIN DISCOLOURATION [None]
  - MITRAL VALVE INCOMPETENCE [None]
  - AORTIC VALVE INCOMPETENCE [None]
  - DIABETIC RETINOPATHY [None]
  - MULTIPLE INJURIES [None]
  - ECONOMIC PROBLEM [None]
  - HAEMOGLOBIN DECREASED [None]
  - TRICUSPID VALVE INCOMPETENCE [None]
  - DEHYDRATION [None]
  - ISCHAEMIC CARDIOMYOPATHY [None]
  - PARAESTHESIA [None]
